FAERS Safety Report 24673581 (Version 1)
Quarter: 2024Q4

REPORT INFORMATION
  Report Type: Report from Study
  Country: US (occurrence: US)
  Receive Date: 20241128
  Receipt Date: 20241128
  Transmission Date: 20250115
  Serious: Yes (Hospitalization, Other)
  Sender: ABBVIE
  Company Number: US-ABBVIE-6018869

PATIENT
  Age: 61 Year
  Sex: Female

DRUGS (1)
  1. OZURDEX [Suspect]
     Active Substance: DEXAMETHASONE
     Indication: Product used for unknown indication
     Dosage: TIME INTERVAL: AS NECESSARY: FORM STRENGTH: 0.7 MILLIGRAM
     Route: 050
     Dates: start: 2022

REACTIONS (1)
  - Bacterial sepsis [Recovered/Resolved]

NARRATIVE: CASE EVENT DATE: 20240801
